FAERS Safety Report 8987845 (Version 1)
Quarter: 2012Q4

REPORT INFORMATION
  Report Type: 
  Country: US (occurrence: US)
  Receive Date: 20121227
  Receipt Date: 20121227
  Transmission Date: 20130627
  Serious: No
  Sender: FDA-Public Use
  Company Number: US-PFIZER INC-2012326718

PATIENT
  Age: 57 Year
  Sex: Male
  Weight: 62.81 kg

DRUGS (3)
  1. TYGACIL [Suspect]
     Dosage: 100 mg, 2x/day
     Route: 042
     Dates: start: 20121218
  2. TYGACIL [Suspect]
     Dosage: 50 mg, 2x/day
     Route: 042
  3. GENTAMICIN [Concomitant]
     Dosage: UNK

REACTIONS (1)
  - Blood sodium increased [Unknown]
